FAERS Safety Report 9819319 (Version 1)
Quarter: 2014Q1

REPORT INFORMATION
  Report Type: Spontaneous
  Country: GR (occurrence: None)
  Receive Date: 20140113
  Receipt Date: 20140113
  Transmission Date: 20141002
  Serious: Yes (Other)
  Sender: FDA-Public Use
  Company Number: FK201400074

PATIENT
  Age: 41 Year
  Sex: Female

DRUGS (3)
  1. BLEOMYCIN [Suspect]
     Indication: OVARIAN CANCER RECURRENT
  2. ETOPOSIDE (ETOPOSDE) [Concomitant]
  3. CISPLATIN (CISPLATIN) [Concomitant]
     Indication: OVARIAN CANCER RECURRENT

REACTIONS (4)
  - Chest discomfort [None]
  - Chest pain [None]
  - Tachypnoea [None]
  - Sinus tachycardia [None]
